FAERS Safety Report 9224441 (Version 1)
Quarter: 2013Q1

REPORT INFORMATION
  Report Type: Spontaneous
  Country: US (occurrence: None)
  Receive Date: 20120917
  Receipt Date: 20120917
  Transmission Date: 20140127
  Serious: Yes (Disabling)
  Sender: FDA-Public Use
  Company Number: 2012SP031274

PATIENT
  Age: 31 Year
  Sex: Female

DRUGS (1)
  1. IMPLANON (68 MG) [Suspect]
     Indication: PRODUCT USED FOR UNKNOWN INDICATION
     Dates: start: 200902

REACTIONS (2)
  - Implant site pain [None]
  - Incorrect drug administration duration [None]
